FAERS Safety Report 8681292 (Version 2)
Quarter: 2013Q4

REPORT INFORMATION
  Report Type: Spontaneous
  Country: GB (occurrence: GB)
  Receive Date: 20120725
  Receipt Date: 20131101
  Transmission Date: 20140711
  Serious: Yes (Hospitalization)
  Sender: FDA-Public Use
  Company Number: GB-009507513-1207GBR005343

PATIENT
  Age: 83 Year
  Sex: Male

DRUGS (5)
  1. DEXAMETHASONE TABLETS BP 2.0MG [Suspect]
     Dosage: 10 MG, UNK
     Route: 048
     Dates: start: 20120110, end: 20120314
  2. VELCADE [Suspect]
     Indication: PLASMA CELL MYELOMA
     Dosage: 2.3 MG, UNK
     Route: 058
     Dates: start: 20120110, end: 20120314
  3. ASPIRIN [Concomitant]
     Indication: PROPHYLAXIS
     Dosage: 75 MG, QD
     Route: 048
  4. ACETAMINOPHEN [Concomitant]
     Indication: PROPHYLAXIS
     Route: 048
  5. PROCHLORPERAZINE [Concomitant]

REACTIONS (4)
  - Orthostatic hypotension [Recovered/Resolved]
  - Agitation [Recovering/Resolving]
  - Confusional state [Recovering/Resolving]
  - Off label use [Unknown]
